FAERS Safety Report 25239048 (Version 1)
Quarter: 2025Q2

REPORT INFORMATION
  Report Type: Spontaneous
  Country: US (occurrence: US)
  Receive Date: 20250425
  Receipt Date: 20250425
  Transmission Date: 20250717
  Serious: Yes (Disabling, Other)
  Sender: JOHNSON AND JOHNSON
  Company Number: US-JNJFOC-20250426879

PATIENT
  Age: 72 Year
  Sex: Male

DRUGS (2)
  1. TALVEY [Suspect]
     Active Substance: TALQUETAMAB-TGVS
     Indication: Plasma cell leukaemia
     Route: 058
     Dates: start: 20241126, end: 20250114
  2. HUMAN IMMUNOGLOBULIN G [Concomitant]
     Active Substance: HUMAN IMMUNOGLOBULIN G
     Indication: Hypogammaglobulinaemia

REACTIONS (4)
  - Giant cell arteritis [Not Recovered/Not Resolved]
  - Blindness unilateral [Unknown]
  - Hypogammaglobulinaemia [Unknown]
  - Off label use [Unknown]

NARRATIVE: CASE EVENT DATE: 20250118
